FAERS Safety Report 9904706 (Version 5)
Quarter: 2014Q4

REPORT INFORMATION
  Report Type: Spontaneous
  Country: US (occurrence: US)
  Receive Date: 20140218
  Receipt Date: 20141106
  Transmission Date: 20150529
  Serious: Yes (Disabling, Other)
  Sender: FDA-Public Use
  Company Number: US-009507513-1402USA005141

PATIENT
  Sex: Female
  Weight: 57.14 kg

DRUGS (3)
  1. FOSAMAX [Suspect]
     Active Substance: ALENDRONATE SODIUM
     Indication: OSTEOPOROSIS
     Dosage: 70 MG, QW
     Route: 048
     Dates: start: 2003, end: 20130131
  2. FOSAMAX [Suspect]
     Active Substance: ALENDRONATE SODIUM
     Indication: OSTEOPENIA
  3. ALENDRONATE SODIUM. [Suspect]
     Active Substance: ALENDRONATE SODIUM
     Dosage: 70 MG, UNK
     Route: 048
     Dates: start: 20090305, end: 20101213

REACTIONS (28)
  - Osteonecrosis of jaw [Not Recovered/Not Resolved]
  - Hypertension [Unknown]
  - Poor personal hygiene [Unknown]
  - Dental discomfort [Recovered/Resolved]
  - Tooth disorder [Unknown]
  - Endodontic procedure [Unknown]
  - Tooth infection [Unknown]
  - Surgery [Unknown]
  - Ocular discomfort [Unknown]
  - Eye haemorrhage [Unknown]
  - Pulpitis dental [Unknown]
  - Endodontic procedure [Unknown]
  - Tooth disorder [Unknown]
  - Bone graft [Unknown]
  - Endodontic procedure [Unknown]
  - Dental care [Unknown]
  - Tooth abscess [Unknown]
  - Intraneural cyst [Unknown]
  - Gingival recession [Unknown]
  - Toothache [Unknown]
  - Tooth abscess [Unknown]
  - Tooth abscess [Unknown]
  - Dental necrosis [Unknown]
  - Tooth disorder [Unknown]
  - Endodontic procedure [Unknown]
  - Apicectomy [Unknown]
  - Dental caries [Unknown]
  - Wound dehiscence [Unknown]

NARRATIVE: CASE EVENT DATE: 2003
